FAERS Safety Report 24990361 (Version 1)
Quarter: 2025Q1

REPORT INFORMATION
  Report Type: Spontaneous
  Country: US (occurrence: US)
  Receive Date: 20250220
  Receipt Date: 20250220
  Transmission Date: 20250408
  Serious: Yes (Hospitalization, Other)
  Sender: AMGEN
  Company Number: US-AMGEN-USASP2025029937

PATIENT
  Age: 79 Year
  Sex: Female

DRUGS (9)
  1. XGEVA [Suspect]
     Active Substance: DENOSUMAB
     Indication: Product used for unknown indication
     Route: 065
  2. FEMARA [Concomitant]
     Active Substance: LETROZOLE
     Indication: Breast cancer female
     Route: 065
     Dates: start: 20201016
  3. IBRANCE [Concomitant]
     Active Substance: PALBOCICLIB
     Indication: Breast cancer female
     Route: 048
     Dates: start: 20201016, end: 20210813
  4. IBRANCE [Concomitant]
     Active Substance: PALBOCICLIB
     Dosage: 75 MILLIGRAM, QD (DAILY 14/21 DAYS)
     Route: 048
     Dates: start: 20230925, end: 202402
  5. IBRANCE [Concomitant]
     Active Substance: PALBOCICLIB
     Dosage: 75 MILLIGRAM, QD
     Route: 048
     Dates: start: 20240313, end: 20240408
  6. IBRANCE [Concomitant]
     Active Substance: PALBOCICLIB
     Route: 048
     Dates: start: 20240423
  7. VITAMIN D [Concomitant]
     Active Substance: VITAMIN D NOS
  8. Calcium plus [Concomitant]
  9. LETROZOLE [Concomitant]
     Active Substance: LETROZOLE
     Dosage: 2.5 MILLIGRAM, QD
     Route: 048
     Dates: start: 20201016

REACTIONS (8)
  - Respiratory failure [Unknown]
  - Left ventricular failure [Unknown]
  - Pneumonia [Unknown]
  - Anaemia [Unknown]
  - Disease progression [Unknown]
  - Blood calcium decreased [Unknown]
  - Fatigue [Unknown]
  - Asthenia [Unknown]

NARRATIVE: CASE EVENT DATE: 20230828
